FAERS Safety Report 12169150 (Version 1)
Quarter: 2016Q1

REPORT INFORMATION
  Report Type: Spontaneous
  Country: US (occurrence: US)
  Receive Date: 20160310
  Receipt Date: 20160310
  Transmission Date: 20160526
  Serious: Yes (Death, Life-Threatening, Hospitalization)
  Sender: FDA-Public Use
  Company Number: PHHY2016US028768

PATIENT
  Age: 48 Year
  Sex: Male

DRUGS (11)
  1. BEVACIZUMAB [Suspect]
     Active Substance: BEVACIZUMAB
     Indication: COLORECTAL CANCER
     Route: 065
  2. FOLINIC ACID [Suspect]
     Active Substance: LEUCOVORIN
     Indication: COLORECTAL CANCER
  3. IRINOTECAN [Suspect]
     Active Substance: IRINOTECAN
     Indication: COLORECTAL CANCER
     Route: 065
  4. 5-FLUOROURACIL [Suspect]
     Active Substance: FLUOROURACIL
     Indication: COLORECTAL CANCER
     Dosage: UNK
     Route: 065
  5. FOLINIC ACID [Suspect]
     Active Substance: LEUCOVORIN
     Dosage: 250 MG/M2, UNK
     Route: 065
     Dates: start: 201310
  6. OXALIPLATIN. [Suspect]
     Active Substance: OXALIPLATIN
     Indication: COLORECTAL CANCER
     Route: 065
  7. REGORAFENIB [Suspect]
     Active Substance: REGORAFENIB
     Dosage: 80 UNK, UNK
     Route: 065
  8. 5-FLUOROURACIL [Suspect]
     Active Substance: FLUOROURACIL
     Dosage: 2400 MG/M2.
     Route: 041
     Dates: start: 201310
  9. REGORAFENIB [Suspect]
     Active Substance: REGORAFENIB
     Indication: COLORECTAL CANCER
     Dosage: 160 MG, QD
     Route: 065
     Dates: start: 201310
  10. 5-FLUOROURACIL [Suspect]
     Active Substance: FLUOROURACIL
     Dosage: 400 MG/M2, UNK
     Route: 040
     Dates: start: 201310
  11. 5-FLUOROURACIL [Suspect]
     Active Substance: FLUOROURACIL
     Dosage: 80 %, UNK
     Route: 065
     Dates: start: 201310

REACTIONS (14)
  - Neutropenia [Fatal]
  - Bacteraemia [Fatal]
  - Mucosal inflammation [Fatal]
  - Septic shock [Fatal]
  - Hyperbilirubinaemia [Fatal]
  - Diarrhoea [Fatal]
  - Systemic candida [Fatal]
  - Toxicity to various agents [Fatal]
  - Colorectal cancer [Fatal]
  - Thrombocytopenia [Fatal]
  - Disease progression [Fatal]
  - Sepsis [Fatal]
  - Hepatic function abnormal [Fatal]
  - Drug effect incomplete [Fatal]
